FAERS Safety Report 17296011 (Version 1)
Quarter: 2020Q1

REPORT INFORMATION
  Report Type: Spontaneous
  Country: FR (occurrence: FR)
  Receive Date: 20200121
  Receipt Date: 20200121
  Transmission Date: 20200409
  Serious: Yes (Hospitalization, Other)
  Sender: FDA-Public Use
  Company Number: FR-MYLANLABS-2020M1004898

PATIENT
  Age: 49 Year
  Sex: Male

DRUGS (1)
  1. RISPERIDONE. [Suspect]
     Active Substance: RISPERIDONE
     Indication: PRODUCT USED FOR UNKNOWN INDICATION
     Dosage: 45 MILLIGRAM, TOTAL
     Route: 048
     Dates: start: 20191016

REACTIONS (5)
  - Intentional overdose [Recovered/Resolved]
  - Confusional state [Recovered/Resolved]
  - Dystonia [Recovered/Resolved]
  - Suicide attempt [Unknown]
  - Tremor [Recovered/Resolved]

NARRATIVE: CASE EVENT DATE: 20191016
